FAERS Safety Report 9880408 (Version 3)
Quarter: 2014Q1

REPORT INFORMATION
  Report Type: Spontaneous
  Country: IE (occurrence: IE)
  Receive Date: 20140207
  Receipt Date: 20140331
  Transmission Date: 20141002
  Serious: Yes (Hospitalization, Other)
  Sender: FDA-Public Use
  Company Number: IE-AMGEN-IRLSP2014008505

PATIENT
  Age: 71 Year
  Sex: Male
  Weight: 57 kg

DRUGS (4)
  1. ENBREL [Suspect]
     Indication: RHEUMATOID ARTHRITIS
     Dosage: 50 MG, WEEKLY
     Route: 065
     Dates: start: 201005, end: 201308
  2. METHOTREXATE [Concomitant]
     Indication: RHEUMATOID ARTHRITIS
     Dosage: 10 MG, WEEKLY
     Route: 048
     Dates: start: 201110, end: 201308
  3. FOLIC ACID [Concomitant]
     Indication: RHEUMATOID ARTHRITIS
     Dosage: 5 MG, WEEKLY
     Route: 048
     Dates: start: 201110, end: 201308
  4. LEVODOPA [Concomitant]
     Indication: PARKINSON^S DISEASE
     Dosage: 50 MG, 4X/DAY
     Dates: start: 2009

REACTIONS (24)
  - Spondylitis [Unknown]
  - Intervertebral disc protrusion [Unknown]
  - Lumbar spinal stenosis [Unknown]
  - Nerve compression [Unknown]
  - Perineurial cyst [Unknown]
  - Alanine aminotransferase decreased [Unknown]
  - Blood thyroid stimulating hormone decreased [Unknown]
  - Serum ferritin increased [Unknown]
  - Blood creatine phosphokinase decreased [Unknown]
  - Blood urea increased [Unknown]
  - Blood calcium decreased [Unknown]
  - Prothrombin time prolonged [Unknown]
  - Activated partial thromboplastin time prolonged [Unknown]
  - Red blood cell count decreased [Unknown]
  - Haemoglobin decreased [Unknown]
  - Haematocrit decreased [Unknown]
  - Red blood cell sedimentation rate increased [Unknown]
  - Skin papilloma [Unknown]
  - Bronchial neoplasm [Unknown]
  - Pulmonary mass [Unknown]
  - Intervertebral discitis [Unknown]
  - Abscess [Unknown]
  - Tuberculosis [Unknown]
  - Aspergillus infection [Recovering/Resolving]
